FAERS Safety Report 6023309-7 (Version None)
Quarter: 2008Q4

REPORT INFORMATION
  Report Type: 
  Country: None (occurrence: None)
  Receive Date: 20081230
  Receipt Date: 20081222
  Transmission Date: 20090506
  Serious: Yes (Other)
  Sender: FDA-Public Use
  Company Number: FI-JNJFOC-20081206025

PATIENT
  Sex: Female

DRUGS (6)
  1. REMICADE [Suspect]
     Route: 042
  2. REMICADE [Suspect]
     Route: 042
  3. REMICADE [Suspect]
     Route: 042
  4. REMICADE [Suspect]
     Route: 042
  5. REMICADE [Suspect]
     Indication: CROHN'S DISEASE
     Route: 042
  6. MERCAPTOPURINE [Concomitant]

REACTIONS (5)
  - ANAL ABSCESS [None]
  - EYE DISORDER [None]
  - LUPUS-LIKE SYNDROME [None]
  - URTICARIA [None]
  - VIRAL INFECTION [None]
